FAERS Safety Report 11714563 (Version 1)
Quarter: 2015Q4

REPORT INFORMATION
  Report Type: Spontaneous
  Country: US (occurrence: US)
  Receive Date: 20151109
  Receipt Date: 20151109
  Transmission Date: 20160304
  Serious: No
  Sender: FDA-Public Use
  Company Number: US-BAYER-2015-463967

PATIENT
  Age: 88 Year
  Sex: Female
  Weight: 79.37 kg

DRUGS (4)
  1. LISINOPRIL. [Concomitant]
     Active Substance: LISINOPRIL
  2. CALCIUM [Concomitant]
     Active Substance: CALCIUM
  3. MIRALAX [Suspect]
     Active Substance: POLYETHYLENE GLYCOL 3350
     Indication: CONSTIPATION
     Dosage: 17 GRAMS IN 8 OUNCES OF BEVERAGE, AS NEED
     Route: 048
  4. MIRALAX [Suspect]
     Active Substance: POLYETHYLENE GLYCOL 3350
     Indication: CONSTIPATION
     Dosage: HALF THE DOSAGE AND MIXING IT IN 8 OUNCES OF BEVERAGE, DAILY

REACTIONS (3)
  - Product use issue [None]
  - Arthritis [None]
  - Product quality issue [None]
